FAERS Safety Report 23916361 (Version 2)
Quarter: 2024Q3

REPORT INFORMATION
  Report Type: Spontaneous
  Country: US (occurrence: US)
  Receive Date: 20240529
  Receipt Date: 20240717
  Transmission Date: 20241017
  Serious: No
  Sender: CALLIDITAS THERAPEUTICS
  Company Number: US-Calliditas-2024CAL00802

PATIENT
  Age: 39 Year
  Sex: Female
  Weight: 54.8 kg

DRUGS (1)
  1. TARPEYO [Suspect]
     Active Substance: BUDESONIDE
     Indication: IgA nephropathy
     Route: 048
     Dates: start: 20240416

REACTIONS (8)
  - Sleep disorder [Unknown]
  - Urine odour abnormal [Unknown]
  - Mood altered [Unknown]
  - Urinary tract infection [Unknown]
  - Polymenorrhoea [Unknown]
  - Intermenstrual bleeding [Unknown]
  - Inappropriate schedule of product administration [Unknown]
  - Accidental overdose [Unknown]

NARRATIVE: CASE EVENT DATE: 20240710
